FAERS Safety Report 8180144-1 (Version None)
Quarter: 2012Q1

REPORT INFORMATION
  Report Type: 
  Country: None (occurrence: None)
  Receive Date: 20120302
  Receipt Date: 20120227
  Transmission Date: 20120608
  Serious: Yes (Other)
  Sender: FDA-Public Use
  Company Number: FR-BAYER-2012-019638

PATIENT
  Age: 70 Year
  Sex: Female

DRUGS (1)
  1. ASPIRINE PROTECT [Suspect]

REACTIONS (2)
  - RASH [None]
  - ANGIOEDEMA [None]
